FAERS Safety Report 13682614 (Version 2)
Quarter: 2017Q2

REPORT INFORMATION
  Report Type: Spontaneous
  Country: US (occurrence: US)
  Receive Date: 20170623
  Receipt Date: 20170623
  Transmission Date: 20170830
  Serious: No
  Sender: FDA-Public Use
  Company Number: US-MALLINCKRODT-T201603081

PATIENT
  Age: 75 Year
  Sex: Female

DRUGS (10)
  1. BACTRIM DS [Concomitant]
     Active Substance: SULFAMETHOXAZOLE\TRIMETHOPRIM
     Dosage: 800-160
     Route: 048
  2. BRISDELLE [Concomitant]
     Active Substance: PAROXETINE MESYLATE
     Dosage: 7.5 MG
  3. DEXILANT [Concomitant]
     Active Substance: DEXLANSOPRAZOLE
     Dosage: 60 MG
  4. RECLAST [Concomitant]
     Active Substance: ZOLEDRONIC ACID
     Dosage: 5/100 ML
  5. LEVOTHYROXIN [Concomitant]
     Active Substance: LEVOTHYROXINE
     Dosage: 50 MCG
  6. PAROXETINE. [Concomitant]
     Active Substance: PAROXETINE
     Dosage: 10 MG
  7. H.P. ACTHAR [Suspect]
     Active Substance: CORTICOTROPIN
     Indication: IRIDOCYCLITIS
     Dosage: 80 UNITS/1 ML TWICE PER WEEK
     Route: 058
     Dates: start: 20160627
  8. ILEVRO [Concomitant]
     Active Substance: NEPAFENAC
  9. LIOTHYRONINE [Concomitant]
     Active Substance: LIOTHYRONINE
     Dosage: 5 MCG
  10. METHOTREXATE. [Concomitant]
     Active Substance: METHOTREXATE
     Dosage: 2.5 M G

REACTIONS (4)
  - Migraine [Not Recovered/Not Resolved]
  - Rash [Not Recovered/Not Resolved]
  - Diarrhoea [Not Recovered/Not Resolved]
  - Nausea [Not Recovered/Not Resolved]

NARRATIVE: CASE EVENT DATE: 201607
